FAERS Safety Report 7116784-8 (Version None)
Quarter: 2010Q4

REPORT INFORMATION
  Report Type: 
  Country: None (occurrence: None)
  Receive Date: 20101122
  Receipt Date: 20101117
  Transmission Date: 20110411
  Serious: Yes (Hospitalization)
  Sender: FDA-Public Use
  Company Number: FR-BRISTOL-MYERS SQUIBB COMPANY-15393747

PATIENT
  Age: 50 Year
  Sex: Female

DRUGS (5)
  1. APROVEL TABS 300 MG [Suspect]
     Route: 048
     Dates: start: 20101010, end: 20101031
  2. FLUDEX [Suspect]
     Route: 048
     Dates: start: 20101004, end: 20101031
  3. LEVOTHYROXINE SODIUM [Concomitant]
  4. SEROPRAM [Concomitant]
  5. LAROXYL [Concomitant]

REACTIONS (3)
  - PRURITUS [None]
  - RASH [None]
  - SYSTEMIC LUPUS ERYTHEMATOSUS [None]
